FAERS Safety Report 7359577-9 (Version None)
Quarter: 2011Q1

REPORT INFORMATION
  Report Type: 
  Country: None (occurrence: None)
  Receive Date: 20110317
  Receipt Date: 20100126
  Transmission Date: 20110831
  Serious: No
  Sender: FDA-Public Use
  Company Number: US-PFIZER INC-2009311139

PATIENT
  Sex: Female

DRUGS (2)
  1. AMLODIPINE BESYLATE [Suspect]
     Dosage: 2.5 MG, UNK
     Dates: start: 20070101
  2. NORVASC [Suspect]
     Dosage: 2.5 MG, UNK
     Dates: start: 20070101

REACTIONS (1)
  - DRUG INEFFECTIVE [None]
